FAERS Safety Report 14794802 (Version 4)
Quarter: 2018Q3

REPORT INFORMATION
  Report Type: Spontaneous
  Country: US (occurrence: US)
  Receive Date: 20180423
  Receipt Date: 20180717
  Transmission Date: 20181010
  Serious: Yes (Death, Other)
  Sender: FDA-Public Use
  Company Number: US-ASTELLAS-2018US018559

PATIENT
  Age: 85 Year
  Sex: Male

DRUGS (1)
  1. XTANDI [Suspect]
     Active Substance: ENZALUTAMIDE
     Indication: PROSTATE CANCER
     Route: 048

REACTIONS (3)
  - Myocardial infarction [Unknown]
  - Death [Fatal]
  - Hip fracture [Unknown]

NARRATIVE: CASE EVENT DATE: 20180405
